FAERS Safety Report 9405324 (Version 1)
Quarter: 2013Q3

REPORT INFORMATION
  Report Type: Spontaneous
  Country: GR (occurrence: None)
  Receive Date: 20130703
  Receipt Date: 20130703
  Transmission Date: 20140515
  Serious: Yes (Other)
  Sender: FDA-Public Use
  Company Number: 2013036608

PATIENT
  Age: 9 Month
  Sex: Male

DRUGS (5)
  1. IMMUNOGLOBULIN [Suspect]
     Indication: HAEMOLYTIC ANAEMIA
  2. IMMUNOGLOBULIN [Suspect]
     Indication: IMMUNE THROMBOCYTOPENIC PURPURA
  3. IMMUNOGLOBULIN [Suspect]
     Indication: EVANS SYNDROME
  4. IMMUNOGLOBULIN [Suspect]
     Indication: PANCYTOPENIA
  5. PREDNISOLONE (PREDNISOLONE) [Concomitant]

REACTIONS (6)
  - Hypocalcaemia [None]
  - Drug ineffective for unapproved indication [None]
  - Sepsis [None]
  - Neutropenia [None]
  - Stomatitis [None]
  - Bone marrow transplant [None]
